FAERS Safety Report 20659581 (Version 1)
Quarter: 2022Q1

REPORT INFORMATION
  Report Type: Spontaneous
  Country: US (occurrence: None)
  Receive Date: 20220331
  Receipt Date: 20220331
  Transmission Date: 20220423
  Serious: Yes (unspecified)
  Sender: FDA-Public Use
  Company Number: None

PATIENT
  Age: 23 Year
  Sex: Female
  Weight: 61.2 kg

DRUGS (8)
  1. DRONABINOL [Suspect]
     Active Substance: DRONABINOL
     Indication: Substance use
     Dosage: OTHER QUANTITY : 1 GUMMY;?OTHER FREQUENCY : TRIED IT ONCE;?
     Route: 048
  2. DRONABINOL [Suspect]
     Active Substance: DRONABINOL
     Indication: Anxiety
  3. HUMIRA [Concomitant]
     Active Substance: ADALIMUMAB
  4. OMEPRAZOLE [Concomitant]
     Active Substance: OMEPRAZOLE
  5. APRISO [Concomitant]
     Active Substance: MESALAMINE
  6. MONTELUKAST [Concomitant]
     Active Substance: MONTELUKAST SODIUM
  7. lo estrin [Concomitant]
  8. VITAMIN D3 [Concomitant]
     Active Substance: CHOLECALCIFEROL

REACTIONS (6)
  - Panic attack [None]
  - Hallucination [None]
  - Amnesia [None]
  - Confusional state [None]
  - Feeling abnormal [None]
  - Euphoric mood [None]

NARRATIVE: CASE EVENT DATE: 20220331
